FAERS Safety Report 9393132 (Version 1)
Quarter: 2013Q3

REPORT INFORMATION
  Report Type: Spontaneous
  Country: US (occurrence: US)
  Receive Date: 20130710
  Receipt Date: 20130710
  Transmission Date: 20140515
  Serious: Yes (Other)
  Sender: FDA-Public Use
  Company Number: US-ELI_LILLY_AND_COMPANY-US201306009250

PATIENT
  Age: 55 Year
  Sex: Female

DRUGS (3)
  1. CYMBALTA [Suspect]
     Indication: OSTEOARTHRITIS
     Dosage: 30 MG, UNK
     Route: 065
  2. CYMBALTA [Suspect]
     Dosage: 60 MG, QD
     Route: 065
  3. VIOXX [Concomitant]
     Dosage: UNK, UNKNOWN
     Route: 065

REACTIONS (3)
  - Hypersensitivity [Recovered/Resolved]
  - Muscular weakness [Recovered/Resolved]
  - Inappropriate schedule of drug administration [Recovered/Resolved]
